FAERS Safety Report 25499527 (Version 1)
Quarter: 2025Q2

REPORT INFORMATION
  Report Type: Spontaneous
  Country: US (occurrence: None)
  Receive Date: 20250628
  Receipt Date: 20250628
  Transmission Date: 20250717
  Serious: Yes (Other)
  Sender: FDA-CTU
  Company Number: None

PATIENT
  Age: 51 Year
  Sex: Female
  Weight: 99 kg

DRUGS (9)
  1. AIMOVIG [Suspect]
     Active Substance: ERENUMAB-AOOE
     Indication: Migraine
     Route: 058
     Dates: start: 20250425, end: 20250425
  2. TEGRETOL [Concomitant]
     Active Substance: CARBAMAZEPINE
  3. PANTOPRAZOLE SODIUM [Concomitant]
     Active Substance: PANTOPRAZOLE SODIUM
  4. GABAPENTIN [Concomitant]
     Active Substance: GABAPENTIN
  5. PREMARIN [Concomitant]
     Active Substance: ESTROGENS, CONJUGATED
  6. SYNTHROID [Concomitant]
     Active Substance: LEVOTHYROXINE SODIUM
  7. ZYRTEC [Concomitant]
     Active Substance: CETIRIZINE HYDROCHLORIDE
  8. famotodine [Concomitant]
  9. IBUPROFEN [Concomitant]
     Active Substance: IBUPROFEN

REACTIONS (8)
  - Sinus disorder [None]
  - Sinus pain [None]
  - Vestibular migraine [None]
  - Dizziness [None]
  - Nausea [None]
  - Fatigue [None]
  - Neuralgia [None]
  - Dysgeusia [None]

NARRATIVE: CASE EVENT DATE: 20250426
